FAERS Safety Report 8413395-9 (Version None)
Quarter: 2012Q2

REPORT INFORMATION
  Report Type: 
  Country: None (occurrence: None)
  Receive Date: 20120605
  Receipt Date: 20120529
  Transmission Date: 20120825
  Serious: Yes (Other)
  Sender: FDA-Public Use
  Company Number: PHHY2012DK045959

PATIENT
  Sex: Male

DRUGS (2)
  1. FLUOXETINE [Suspect]
     Route: 064
  2. FLUTICASONE PROPIONATE/SALMETEROL [Concomitant]
     Indication: ASTHMA

REACTIONS (2)
  - PSYCHOMOTOR SKILLS IMPAIRED [None]
  - FOETAL EXPOSURE DURING PREGNANCY [None]
